FAERS Safety Report 5746995-5 (Version None)
Quarter: 2008Q2

REPORT INFORMATION
  Report Type: 
  Country: None (occurrence: None)
  Receive Date: 20080522
  Receipt Date: 20080516
  Transmission Date: 20081010
  Serious: Yes (Hospitalization)
  Sender: FDA-Public Use
  Company Number: FR-PFIZER INC-2008042978

PATIENT
  Sex: Male

DRUGS (7)
  1. AMLOR [Suspect]
     Indication: HYPERTENSION
     Route: 048
  2. FOSINOPRIL SODIUM [Suspect]
     Indication: HYPERTENSION
     Route: 048
  3. SUFENTANIL CITRATE [Concomitant]
     Dates: start: 20070615, end: 20070615
  4. BUPIVACAINE [Concomitant]
     Dates: start: 20070615, end: 20070615
  5. PHENYLEPHRINE [Concomitant]
     Dates: start: 20070615, end: 20070615
  6. ELISOR [Concomitant]
     Route: 048
  7. LEVOTHYROXINE SODIUM [Concomitant]
     Route: 048

REACTIONS (3)
  - CIRCULATORY COLLAPSE [None]
  - RENAL FAILURE ACUTE [None]
  - SYNCOPE [None]
